FAERS Safety Report 6725704-7 (Version None)
Quarter: 2010Q2

REPORT INFORMATION
  Report Type: 
  Country: None (occurrence: None)
  Receive Date: 20100513
  Receipt Date: 20100513
  Transmission Date: 20101027
  Serious: No
  Sender: FDA-Public Use
  Company Number: None

PATIENT
  Age: 54 Year
  Sex: Female
  Weight: 61.2356 kg

DRUGS (6)
  1. MICONAZOLE 3 [Suspect]
     Indication: ANTIFUNGAL PROPHYLAXIS
     Dosage: 2X DAILY TOP
     Route: 061
     Dates: start: 20100414, end: 20100414
  2. CLOTRIMAZOLE [Concomitant]
  3. CORTISONE [Concomitant]
  4. ESTRACE [Concomitant]
  5. LIDOCAINE [Concomitant]
  6. OINTMENT WITH COCAINE AND MORPHINE [Concomitant]

REACTIONS (3)
  - DRUG INEFFECTIVE [None]
  - INSOMNIA [None]
  - PAIN [None]
